FAERS Safety Report 10815248 (Version 1)
Quarter: 2015Q1

REPORT INFORMATION
  Report Type: Spontaneous
  Country: US (occurrence: US)
  Receive Date: 20150218
  Receipt Date: 20150218
  Transmission Date: 20150721
  Serious: Yes (Other)
  Sender: FDA-Public Use
  Company Number: US-SHIRE-US201501161

PATIENT
  Age: 51 Year
  Sex: Female
  Weight: 79.37 kg

DRUGS (10)
  1. PREDNISONE. [Suspect]
     Active Substance: PREDNISONE
     Indication: CHEST DISCOMFORT
  2. PREDNISONE. [Suspect]
     Active Substance: PREDNISONE
     Indication: ABDOMINAL PAIN UPPER
  3. PREDNISONE. [Suspect]
     Active Substance: PREDNISONE
     Indication: DYSPNOEA
  4. PREDNISONE. [Suspect]
     Active Substance: PREDNISONE
     Indication: PARAESTHESIA
  5. PREDNISONE. [Suspect]
     Active Substance: PREDNISONE
     Indication: ANAPHYLACTIC SHOCK
     Dosage: UNK UNK, UNKNOWN
     Route: 065
     Dates: start: 20150206, end: 20150207
  6. PREDNISONE. [Suspect]
     Active Substance: PREDNISONE
     Indication: SWELLING FACE
  7. PREDNISONE. [Suspect]
     Active Substance: PREDNISONE
     Indication: PRESYNCOPE
  8. PREDNISONE. [Suspect]
     Active Substance: PREDNISONE
     Indication: APPARENT DEATH
  9. VYVANSE [Suspect]
     Active Substance: LISDEXAMFETAMINE DIMESYLATE
     Indication: ATTENTION DEFICIT/HYPERACTIVITY DISORDER
     Dosage: 20 MG, 1X/DAY:QD
     Route: 048
     Dates: start: 20150206, end: 20150206
  10. PREDNISONE. [Suspect]
     Active Substance: PREDNISONE
     Indication: RASH PRURITIC

REACTIONS (15)
  - Presyncope [Unknown]
  - Throat irritation [Not Recovered/Not Resolved]
  - Paraesthesia [Unknown]
  - Feeling hot [Recovered/Resolved]
  - Palpitations [Recovered/Resolved]
  - Pharyngeal oedema [Not Recovered/Not Resolved]
  - Chest discomfort [Unknown]
  - Abdominal pain upper [Unknown]
  - Apparent death [Unknown]
  - Swelling face [Not Recovered/Not Resolved]
  - Anaphylactic shock [Recovered/Resolved]
  - Rash pruritic [Not Recovered/Not Resolved]
  - Dyspnoea [Unknown]
  - Dizziness [Not Recovered/Not Resolved]
  - Drug dose omission [Not Recovered/Not Resolved]

NARRATIVE: CASE EVENT DATE: 20150206
